FAERS Safety Report 10748074 (Version 1)
Quarter: 2015Q1

REPORT INFORMATION
  Report Type: Spontaneous
  Country: FR (occurrence: None)
  Receive Date: 20150127
  Receipt Date: 20150127
  Transmission Date: 20150721
  Serious: Yes (Hospitalization)
  Sender: FDA-Public Use
  Company Number: 2015FE00082

PATIENT
  Age: 27 Year
  Sex: Female

DRUGS (3)
  1. DECAPEPTYL [Suspect]
     Active Substance: TRIPTORELIN ACETATE
     Indication: OVULATION INDUCTION
     Dates: start: 20140405, end: 20140405
  2. OVITRELLE [Suspect]
     Active Substance: CHORIOGONADOTROPIN ALFA
     Indication: OVULATION INDUCTION
     Dates: start: 20140605
  3. MENOPUR [Suspect]
     Active Substance: FOLLICLE STIMULATING HORMONE BETA POLYPEPTIDE\LUTROPIN ALFA
     Indication: OVULATION INDUCTION
     Dates: start: 20140524, end: 20140604

REACTIONS (4)
  - Ascites [None]
  - Ovarian hyperstimulation syndrome [None]
  - Human chorionic gonadotropin increased [None]
  - Supraventricular tachycardia [None]

NARRATIVE: CASE EVENT DATE: 20140625
